FAERS Safety Report 4708002-2 (Version None)
Quarter: 2005Q3

REPORT INFORMATION
  Report Type: 
  Country: None (occurrence: None)
  Receive Date: 20050707
  Receipt Date: 20050627
  Transmission Date: 20060218
  Serious: Yes (Hospitalization)
  Sender: FDA-Public Use
  Company Number: FR-BRISTOL-MYERS SQUIBB COMPANY-13017959

PATIENT
  Age: 86 Year
  Sex: Male

DRUGS (6)
  1. FOZITEC TABS [Suspect]
     Indication: HYPERTENSION
     Route: 048
     Dates: start: 19970925, end: 20050503
  2. SOTALEX TABS 80 MG [Suspect]
     Indication: HYPERTENSION
     Route: 048
     Dates: start: 20010915
  3. ENDOTELON [Suspect]
     Indication: CARDIOVASCULAR DISORDER
     Route: 048
     Dates: start: 20000913, end: 20050503
  4. LASIX [Suspect]
     Indication: HYPERTENSION
     Route: 048
     Dates: start: 19970925, end: 20050503
  5. LOXEN LP [Suspect]
     Indication: HYPERTENSION
     Route: 048
     Dates: start: 19970925
  6. TAHOR [Suspect]
     Indication: HYPERLIPIDAEMIA
     Route: 048
     Dates: start: 20010316, end: 20050504

REACTIONS (11)
  - BLOOD CREATININE INCREASED [None]
  - CEREBROVASCULAR ACCIDENT [None]
  - ECZEMA [None]
  - HEPATIC ENZYME INCREASED [None]
  - LEUKOCYTOCLASTIC VASCULITIS [None]
  - PURPURA [None]
  - PYREXIA [None]
  - RASH PAPULAR [None]
  - RASH PUSTULAR [None]
  - RENAL FAILURE ACUTE [None]
  - TOXIC SKIN ERUPTION [None]
